FAERS Safety Report 4931617-3 (Version None)
Quarter: 2006Q1

REPORT INFORMATION
  Report Type: 
  Country: None (occurrence: None)
  Receive Date: 20060303
  Receipt Date: 20041209
  Transmission Date: 20060701
  Serious: Yes (Life-Threatening, Hospitalization)
  Sender: FDA-Public Use
  Company Number: US-BRISTOL-MYERS SQUIBB COMPANY-12790572

PATIENT
  Age: 60 Year
  Sex: Male
  Weight: 82 kg

DRUGS (16)
  1. ERBITUX [Suspect]
     Indication: COLON CANCER STAGE IV
     Route: 042
     Dates: start: 20041209, end: 20041209
  2. ANZEMET [Concomitant]
     Indication: PREMEDICATION
     Route: 042
     Dates: start: 20041209, end: 20041209
  3. BENADRYL [Concomitant]
     Indication: PREMEDICATION
     Route: 042
     Dates: start: 20041209, end: 20041209
  4. EMEND [Concomitant]
     Indication: PREMEDICATION
     Dates: start: 20041209, end: 20041209
  5. SOLU-CORTEF [Concomitant]
     Indication: PREMEDICATION
     Route: 042
     Dates: start: 20041209, end: 20041209
  6. TYLENOL (CAPLET) [Concomitant]
     Indication: PREMEDICATION
     Dates: start: 20041209, end: 20041209
  7. ACIPHEX [Concomitant]
  8. ASCORBIC ACID [Concomitant]
  9. ASCORBIC ACID [Concomitant]
  10. NIFEREX [Concomitant]
  11. NEXIUM [Concomitant]
  12. CELEXA [Concomitant]
  13. ANZEMET [Concomitant]
  14. LOMOTIL [Concomitant]
  15. PEPCID [Concomitant]
  16. ARANESP [Concomitant]

REACTIONS (1)
  - ANAPHYLACTIC REACTION [None]
